FAERS Safety Report 12129696 (Version 1)
Quarter: 2016Q1

REPORT INFORMATION
  Report Type: Spontaneous
  Country: US (occurrence: None)
  Receive Date: 20160229
  Receipt Date: 20160229
  Transmission Date: 20160526
  Serious: No
  Sender: FDA-Public Use
  Company Number: None

PATIENT
  Age: 51 Year
  Sex: Female

DRUGS (1)
  1. FENTANYL 2500 MCG IN 50 ML [Suspect]
     Active Substance: FENTANYL

REACTIONS (3)
  - Pain [None]
  - Incorrect dose administered by device [None]
  - Device malfunction [None]

NARRATIVE: CASE EVENT DATE: 20160201
